FAERS Safety Report 5352250-8 (Version None)
Quarter: 2007Q2

REPORT INFORMATION
  Report Type: 
  Country: None (occurrence: None)
  Receive Date: 20070611
  Receipt Date: 20070601
  Transmission Date: 20071010
  Serious: Yes (Other)
  Sender: FDA-Public Use
  Company Number: US-JNJFOC-20070601747

PATIENT
  Age: 35 Year
  Sex: Male

DRUGS (1)
  1. LEVAQUIN [Suspect]
     Indication: PROSTATE INFECTION
     Route: 065

REACTIONS (4)
  - NEUROPATHY PERIPHERAL [None]
  - TENDONITIS [None]
  - TINNITUS [None]
  - UNEVALUABLE EVENT [None]
